FAERS Safety Report 9525465 (Version 4)
Quarter: 2017Q4

REPORT INFORMATION
  Report Type: Spontaneous
  Country: JP (occurrence: JP)
  Receive Date: 20130916
  Receipt Date: 20171017
  Transmission Date: 20180321
  Serious: Yes (Life-Threatening)
  Sender: FDA-Public Use
  Company Number: JP-ROCHE-1037842

PATIENT
  Age: 49 Year
  Sex: Female
  Weight: 51 kg

DRUGS (3)
  1. ACTEMRA [Suspect]
     Active Substance: TOCILIZUMAB
     Indication: RHEUMATOID ARTHRITIS
     Route: 041
     Dates: start: 20100824
  2. FOLIAMIN [Concomitant]
     Active Substance: FOLIC ACID
     Indication: PROPHYLAXIS
     Route: 048
     Dates: start: 20100610
  3. RHEUMATREX [Suspect]
     Active Substance: METHOTREXATE SODIUM
     Indication: RHEUMATOID ARTHRITIS
     Route: 048
     Dates: start: 20060921

REACTIONS (4)
  - Pneumonia pneumococcal [Recovered/Resolved]
  - Acute respiratory distress syndrome [Recovered/Resolved]
  - Hypercholesterolaemia [Unknown]
  - Pleurisy [Recovered/Resolved]

NARRATIVE: CASE EVENT DATE: 2011
